FAERS Safety Report 9229796 (Version 1)
Quarter: 2013Q2

REPORT INFORMATION
  Report Type: Spontaneous
  Country: US (occurrence: US)
  Receive Date: 20130415
  Receipt Date: 20130415
  Transmission Date: 20140414
  Serious: Yes (Hospitalization)
  Sender: FDA-Public Use
  Company Number: US-BIOGENIDEC-2013BI032438

PATIENT
  Age: 49 Year
  Sex: Female

DRUGS (1)
  1. TYSABRI [Suspect]
     Indication: MULTIPLE SCLEROSIS
     Route: 042
     Dates: start: 20120808

REACTIONS (8)
  - Multiple sclerosis relapse [Unknown]
  - Sinus disorder [Unknown]
  - Multiple allergies [Unknown]
  - Hypotension [Unknown]
  - Chills [Unknown]
  - Body temperature increased [Recovered/Resolved]
  - Asthenia [Unknown]
  - Gait disturbance [Unknown]
